FAERS Safety Report 7819818-8 (Version None)
Quarter: 2011Q4

REPORT INFORMATION
  Report Type: 
  Country: None (occurrence: None)
  Receive Date: 20111018
  Receipt Date: 20101112
  Transmission Date: 20120403
  Serious: No
  Sender: FDA-Public Use
  Company Number: US-ASTRAZENECA-2010SE54160

PATIENT
  Age: 73 Year
  Sex: Male

DRUGS (9)
  1. FUROSEMIDE [Concomitant]
  2. LIPITOR [Concomitant]
  3. SYMBICORT [Suspect]
     Indication: DYSPNOEA
     Dosage: 160-4.5 MCG - 2, TWO TIMES A DAY.
     Route: 055
     Dates: start: 20100501
  4. MULTI-VITAMIN [Concomitant]
  5. GLIMEPIRIDE [Concomitant]
  6. ASPIRIN [Concomitant]
  7. COUMADIN [Concomitant]
  8. VALIUM [Concomitant]
  9. LISINOPRIL [Concomitant]

REACTIONS (1)
  - DYSPNOEA EXERTIONAL [None]
